FAERS Safety Report 6910970-5 (Version None)
Quarter: 2010Q3

REPORT INFORMATION
  Report Type: 
  Country: None (occurrence: None)
  Receive Date: 20100806
  Receipt Date: 20100730
  Transmission Date: 20110219
  Serious: Yes (Hospitalization)
  Sender: FDA-Public Use
  Company Number: A0847343A

PATIENT
  Sex: Female

DRUGS (3)
  1. ADVAIR DISKUS 100/50 [Suspect]
     Indication: CHRONIC OBSTRUCTIVE PULMONARY DISEASE
     Dosage: 1PUFF TWICE PER DAY
     Route: 055
     Dates: start: 20091201, end: 20100224
  2. LIPITOR [Concomitant]
  3. ATARAX [Concomitant]

REACTIONS (11)
  - ALLERGIC OEDEMA [None]
  - BONE SWELLING [None]
  - BREAST SWELLING [None]
  - JOINT SWELLING [None]
  - LACTOSE INTOLERANCE [None]
  - LOCAL SWELLING [None]
  - LUNG DISORDER [None]
  - LUNG NEOPLASM MALIGNANT [None]
  - OEDEMA PERIPHERAL [None]
  - PRURITUS [None]
  - RASH [None]
